FAERS Safety Report 24351256 (Version 1)
Quarter: 2024Q3

REPORT INFORMATION
  Report Type: Report from Study
  Country: AT (occurrence: AT)
  Receive Date: 20240923
  Receipt Date: 20240923
  Transmission Date: 20241017
  Serious: No
  Sender: ROCHE
  Company Number: AT-ROCHE-2333789

PATIENT
  Age: 51 Year
  Sex: Female
  Weight: 72.0 kg

DRUGS (18)
  1. HERCEPTIN [Suspect]
     Active Substance: TRASTUZUMAB
     Indication: HER2 positive breast cancer
     Route: 042
     Dates: start: 20170912, end: 20200121
  2. PERJETA [Suspect]
     Active Substance: PERTUZUMAB
     Indication: HER2 positive breast cancer
     Dosage: MOST RECENT DOSE PRIOR TO THE EVENT: 29/MAY/2018
     Route: 042
     Dates: start: 20170912, end: 20171023
  3. PARAPLATIN [Suspect]
     Active Substance: CARBOPLATIN
     Indication: HER2 positive breast cancer
     Dosage: RECEIVED MOST RECENT DOSE OF CARBOPLATIN ON 23/OCT/2017.
     Route: 042
     Dates: start: 20170912
  4. TAXOTERE [Suspect]
     Active Substance: DOCETAXEL
     Indication: HER2 positive breast cancer
     Dosage: RECEIVED MOST RECENT DOSE OF DOCETAXEL ON 23/OCT/2017.
     Route: 042
     Dates: start: 20170912
  5. EFUDEX [Suspect]
     Active Substance: FLUOROURACIL
     Indication: HER2 positive breast cancer
     Dosage: MOST RECENT DOSE PRIOR TO THE EVENT: 01/AUG/2018
     Route: 042
     Dates: start: 20180529, end: 20180710
  6. CYTOXAN [Suspect]
     Active Substance: CYCLOPHOSPHAMIDE
     Indication: HER2 positive breast cancer
     Dosage: MOST RECENT DOSE PRIOR TO THE EVENT: 10/JUL/2018
     Route: 042
     Dates: start: 20180529
  7. ELLENCE [Suspect]
     Active Substance: EPIRUBICIN HYDROCHLORIDE
     Indication: HER2 positive breast cancer
     Dosage: MOST RECENT DOSE PRIOR TO THE EVENT: 10/JUL/2018
     Route: 042
     Dates: start: 20180529
  8. DOLOPHINE [Concomitant]
     Active Substance: METHADONE HYDROCHLORIDE
     Dosage: ONGOING = CHECKED
  9. ZOFRAN [Concomitant]
     Active Substance: ONDANSETRON HYDROCHLORIDE
     Dosage: ONGOING = CHECKED
     Dates: start: 20170611
  10. EMEND [Concomitant]
     Active Substance: APREPITANT
     Dosage: ONGOING = CHECKED
     Dates: start: 20170711
  11. DEXAMETHASONE [Concomitant]
     Active Substance: DEXAMETHASONE
     Dosage: ONGOING = CHECKED
     Dates: start: 20170711
  12. NEULASTA [Concomitant]
     Active Substance: PEGFILGRASTIM
     Dosage: ONGOING = CHECKED
     Dates: start: 20170711
  13. LYRICA [Concomitant]
     Active Substance: PREGABALIN
     Indication: Neuropathy peripheral
     Dosage: ONGOING = NOT CHECKED
     Dates: start: 20180829, end: 20190226
  14. BANEOCIN [Concomitant]
     Indication: Rhinitis
     Dosage: ONGOING = NOT CHECKED
     Dates: start: 20190226, end: 20190305
  15. HYSAN (AUSTRIA) [Concomitant]
     Indication: Rhinitis
     Dosage: ONGOING = NOT CHECKED
     Dates: start: 20190226, end: 20190305
  16. ACETYLCYSTEINE [Concomitant]
     Active Substance: ACETYLCYSTEINE
     Indication: Respiratory tract infection
     Dosage: ONGOING = NOT CHECKED
     Dates: start: 20190315, end: 20190315
  17. PULMICORT TURBUHALER [Concomitant]
     Active Substance: BUDESONIDE
     Indication: Respiratory tract infection
     Dosage: ONGOING = NOT CHECKED
     Dates: start: 20190319, end: 20190326
  18. ARANESP [Concomitant]
     Active Substance: DARBEPOETIN ALFA
     Dosage: ONGOING = CHECKED
     Dates: start: 20170711

REACTIONS (5)
  - Rhinitis [Recovered/Resolved]
  - Thrombocytopenia [Recovered/Resolved]
  - Neuropathy peripheral [Unknown]
  - Respiratory tract infection [Recovered/Resolved]
  - Herpes zoster [Recovered/Resolved]

NARRATIVE: CASE EVENT DATE: 20180605
